FAERS Safety Report 7627776-4 (Version None)
Quarter: 2011Q3

REPORT INFORMATION
  Report Type: 
  Country: None (occurrence: None)
  Receive Date: 20110721
  Receipt Date: 20110429
  Transmission Date: 20111222
  Serious: Yes (Hospitalization, Other)
  Sender: FDA-Public Use
  Company Number: PHHO2010US14449

PATIENT
  Sex: Female
  Weight: 59.9 kg

DRUGS (7)
  1. IMATINIB MESYLATE [Interacting]
     Dosage: 200 MG, QD
     Route: 048
     Dates: start: 20100914
  2. TRACLEER [Interacting]
     Indication: PULMONARY ARTERIAL HYPERTENSION
     Dosage: 125 MG, BID
     Dates: start: 20100910, end: 20100918
  3. IMATINIB MESYLATE [Suspect]
     Indication: PULMONARY ARTERIAL HYPERTENSION
     Dosage: 200 MG, QD
     Route: 048
     Dates: start: 20100812, end: 20100825
  4. IMATINIB MESYLATE [Interacting]
     Dosage: 400 MG, QD
     Route: 048
     Dates: start: 20100826, end: 20100913
  5. REVATIO [Concomitant]
     Indication: PULMONARY ARTERIAL HYPERTENSION
  6. REMODULIN [Concomitant]
     Indication: PULMONARY ARTERIAL HYPERTENSION
  7. POTASSIUM CHLORIDE [Concomitant]
     Indication: HYPOKALAEMIA

REACTIONS (6)
  - HYPOKALAEMIA [None]
  - OEDEMA PERIPHERAL [None]
  - NAUSEA [None]
  - DRUG INTERACTION [None]
  - HYPERVOLAEMIA [None]
  - GASTROINTESTINAL HAEMORRHAGE [None]
